FAERS Safety Report 5982004-0 (Version None)
Quarter: 2008Q4

REPORT INFORMATION
  Report Type: 
  Country: None (occurrence: None)
  Receive Date: 20081205
  Receipt Date: 20080225
  Transmission Date: 20090506
  Serious: No
  Sender: FDA-Public Use
  Company Number: US-AMGEN-KDL266893

PATIENT
  Sex: Female

DRUGS (2)
  1. ENBREL [Suspect]
     Indication: PSORIASIS
     Route: 058
     Dates: start: 20080122
  2. ACITRETIN [Concomitant]
     Route: 048
     Dates: start: 19920101

REACTIONS (1)
  - INJECTION SITE HAEMATOMA [None]
